FAERS Safety Report 13645020 (Version 1)
Quarter: 2017Q2

REPORT INFORMATION
  Report Type: Spontaneous
  Country: US (occurrence: US)
  Receive Date: 20170612
  Receipt Date: 20170612
  Transmission Date: 20170830
  Serious: Yes (Disabling)
  Sender: FDA-Public Use
  Company Number: US-ROCHE-1287849

PATIENT
  Sex: Male
  Weight: 61.29 kg

DRUGS (2)
  1. ELOXATIN [Suspect]
     Active Substance: OXALIPLATIN
     Indication: COLON CANCER
     Dosage: FREQUENCY 921 DAYS
     Route: 042
     Dates: start: 20130111
  2. XELODA [Suspect]
     Active Substance: CAPECITABINE
     Indication: COLON CANCER
     Route: 048
     Dates: start: 20130117

REACTIONS (1)
  - Palmar-plantar erythrodysaesthesia syndrome [Unknown]
